FAERS Safety Report 4807067-7 (Version None)
Quarter: 2005Q4

REPORT INFORMATION
  Report Type: 
  Country: None (occurrence: None)
  Receive Date: 20051019
  Receipt Date: 20050707
  Transmission Date: 20060501
  Serious: Yes (Other)
  Sender: FDA-Public Use
  Company Number: EWC051046247

PATIENT
  Age: 38 Year
  Sex: Female
  Weight: 59 kg

DRUGS (4)
  1. GEMCITABINE HYDROCHLORIDE             (GEMCITABINE) [Suspect]
     Indication: NON-SMALL CELL LUNG CANCER
     Dosage: 1963 MG/2 OTHER
     Route: 042
     Dates: start: 20041209, end: 20050524
  2. CISPLATIN [Suspect]
     Indication: NON-SMALL CELL LUNG CANCER
     Dosage: 118 MG/1 OTHER
     Route: 050
     Dates: start: 20041209, end: 20050524
  3. GRANISETRON [Concomitant]
  4. DEXAMETHASONE [Concomitant]

REACTIONS (4)
  - ABDOMINAL PAIN UPPER [None]
  - GRANULOCYTOPENIA [None]
  - LEUKOPENIA [None]
  - ORAL INTAKE REDUCED [None]
